FAERS Safety Report 4597057-4 (Version None)
Quarter: 2005Q1

REPORT INFORMATION
  Report Type: 
  Country: None (occurrence: None)
  Receive Date: 20050301
  Receipt Date: 20050209
  Transmission Date: 20050727
  Serious: Yes (Hospitalization)
  Sender: FDA-Public Use
  Company Number: B0370828A

PATIENT
  Age: 23 Day
  Sex: Female

DRUGS (7)
  1. FORTAZ [Suspect]
  2. AMPICILLIN TRIHYDRATE [Suspect]
  3. TOT. PARENTERAL NUTRITION [Concomitant]
  4. PHENOXYMETHYLPENICILLIN [Concomitant]
  5. GENTAMICIN SULFATE [Concomitant]
  6. CLINDAMYCIN [Concomitant]
  7. CLINDAMYCIN (CLINDAMYCIN) [Suspect]

REACTIONS (8)
  - APPENDICITIS PERFORATED [None]
  - APPENDIX DISORDER [None]
  - GANGRENE [None]
  - INFLAMMATION [None]
  - IRRITABILITY [None]
  - PURULENT DISCHARGE [None]
  - RESPIRATORY DISTRESS [None]
  - VOMITING [None]
